FAERS Safety Report 15790136 (Version 1)
Quarter: 2018Q4

REPORT INFORMATION
  Report Type: Spontaneous
  Country: US (occurrence: US)
  Receive Date: 20181213
  Receipt Date: 20181213
  Transmission Date: 20190205
  Serious: Yes (Hospitalization)
  Sender: FDA-Public Use
  Company Number: None

PATIENT
  Age: 76 Year
  Sex: Male
  Weight: 120.2 kg

DRUGS (2)
  1. CARVEDILOL. [Suspect]
     Active Substance: CARVEDILOL
     Indication: HYPERTENSION
     Dosage: ?          OTHER DOSE:6.25MG;?
     Route: 048
     Dates: start: 20180802, end: 20180812
  2. CARVEDILOL. [Suspect]
     Active Substance: CARVEDILOL
     Indication: CARDIAC OPERATION
     Dosage: ?          OTHER DOSE:6.25MG;?
     Route: 048
     Dates: start: 20180802, end: 20180812

REACTIONS (4)
  - Dyspnoea [None]
  - Asthenia [None]
  - Hypotension [None]
  - Dizziness [None]

NARRATIVE: CASE EVENT DATE: 20180812
